FAERS Safety Report 8611362-3 (Version None)
Quarter: 2012Q3

REPORT INFORMATION
  Report Type: 
  Country: None (occurrence: None)
  Receive Date: 20120822
  Receipt Date: 20120813
  Transmission Date: 20120928
  Serious: Yes (Hospitalization)
  Sender: FDA-Public Use
  Company Number: IT-ELI_LILLY_AND_COMPANY-IT201208003927

PATIENT
  Sex: Male

DRUGS (2)
  1. CYMBALTA [Suspect]
     Indication: PSYCHOTIC DISORDER
     Dosage: 240 MG, SINGLE
     Route: 048
     Dates: start: 20120726, end: 20120726
  2. RISPERDAL [Concomitant]
     Dosage: 12 MG, UNKNOWN
     Route: 048
     Dates: start: 20120726, end: 20120726

REACTIONS (2)
  - SELF INJURIOUS BEHAVIOUR [None]
  - INTENTIONAL OVERDOSE [None]
